FAERS Safety Report 4967162-9 (Version None)
Quarter: 2006Q2

REPORT INFORMATION
  Report Type: 
  Country: None (occurrence: None)
  Receive Date: 20060404
  Receipt Date: 20060322
  Transmission Date: 20061013
  Serious: Yes (Other)
  Sender: FDA-Public Use
  Company Number: HQWYE493923MAR06

PATIENT
  Age: 45 Year
  Sex: Female

DRUGS (1)
  1. PREMPHASE (PREMARIN;CYCRIN 14/14) [Suspect]
     Indication: MENOPAUSE
     Dosage: UNSPECIFIED DOSE TAKEN DAILY, ORAL
     Route: 048
     Dates: start: 20000922

REACTIONS (4)
  - CONFUSIONAL STATE [None]
  - CONVULSION [None]
  - DISORIENTATION [None]
  - DRUG HYPERSENSITIVITY [None]
